FAERS Safety Report 7911781-4 (Version None)
Quarter: 2011Q4

REPORT INFORMATION
  Report Type: 
  Country: None (occurrence: None)
  Receive Date: 20111114
  Receipt Date: 20111114
  Transmission Date: 20120403
  Serious: Yes (Other)
  Sender: FDA-Public Use
  Company Number: None

PATIENT
  Age: 23 Year
  Sex: Female
  Weight: 70.306 kg

DRUGS (2)
  1. NOSTRILLA [Suspect]
     Indication: NASAL CONGESTION
     Dosage: 3 TIMES A DAY FOR BAD CONGESTI
     Dates: start: 20050101, end: 20110915
  2. NOSTRILLA [Suspect]
     Indication: DEPENDENCE
     Dosage: 3 TIMES A DAY FOR BAD CONGESTI
     Dates: start: 20050101, end: 20110915

REACTIONS (8)
  - SWELLING FACE [None]
  - OCULAR HYPERAEMIA [None]
  - PAIN [None]
  - HEADACHE [None]
  - EYE DISCHARGE [None]
  - DRY EYE [None]
  - EYE PAIN [None]
  - HYPERSENSITIVITY [None]
